FAERS Safety Report 10266224 (Version 1)
Quarter: 2014Q2

REPORT INFORMATION
  Report Type: Spontaneous
  Country: US (occurrence: US)
  Receive Date: 20140627
  Receipt Date: 20140627
  Transmission Date: 20141212
  Serious: No
  Sender: FDA-Public Use
  Company Number: US-PFIZER INC-2014175605

PATIENT
  Age: 69 Year
  Sex: Male
  Weight: 120 kg

DRUGS (14)
  1. LYRICA [Suspect]
     Indication: DIABETIC NEUROPATHY
     Dosage: 150 MG, 3X/DAY
     Dates: end: 201406
  2. AMLODIPINE [Concomitant]
     Dosage: 5 MG,DAILY
  3. CYMBALTA [Concomitant]
     Dosage: 90 MG, DAILY
  4. MOBIC [Concomitant]
     Dosage: 15 MG,DAILY
  5. BUPROPION [Concomitant]
     Dosage: 150 MG, 2X/DAY
  6. AMARYL [Concomitant]
     Dosage: 4 MG, 2X/DAY
  7. ISOSORBIDE [Concomitant]
     Dosage: 20 MG, 2X/DAY
  8. ASPIRIN [Concomitant]
     Dosage: 81 MG, DAILY
  9. TRAZODONE [Concomitant]
     Dosage: 100 MG, DAILY
  10. LISINOPRIL [Concomitant]
     Dosage: 10 MG, DAILY
  11. METFORMIN [Concomitant]
     Dosage: 500 MG, 2X/DAY
  12. TEMAZEPAM [Concomitant]
     Dosage: 15 MG, DAILY
  13. HYDROCODONE AND ACETAMINOPHEN [Concomitant]
     Dosage: HYDROCODONE 7.5MG/ ACETAMINOPHEN 325MG, 3X/DAY
  14. CYCLOBENZAPRINE [Concomitant]
     Dosage: 10 MG, DAILY

REACTIONS (1)
  - Pain [Unknown]
